FAERS Safety Report 6606874-8 (Version None)
Quarter: 2010Q1

REPORT INFORMATION
  Report Type: 
  Country: None (occurrence: None)
  Receive Date: 20100226
  Receipt Date: 20090219
  Transmission Date: 20100710
  Serious: No
  Sender: FDA-Public Use
  Company Number: US-ALLERGAN-0902216US

PATIENT
  Age: 39 Year
  Sex: Female

DRUGS (1)
  1. BOTOX [Suspect]
     Indication: BLEPHAROSPASM
     Dosage: UNK, SINGLE
     Route: 030
     Dates: start: 20090115, end: 20090115

REACTIONS (4)
  - DIPLOPIA [None]
  - EYE IRRITATION [None]
  - EYELID PTOSIS [None]
  - OCULAR HYPERAEMIA [None]
